FAERS Safety Report 14271739 (Version 1)
Quarter: 2017Q4

REPORT INFORMATION
  Report Type: Spontaneous
  Country: JP (occurrence: JP)
  Receive Date: 20171211
  Receipt Date: 20171211
  Transmission Date: 20180321
  Serious: Yes (Disabling, Other)
  Sender: FDA-Public Use
  Company Number: JP-OTSUKA-2016_029018

PATIENT
  Age: 54 Year
  Sex: Male

DRUGS (12)
  1. RISPERIDONE. [Suspect]
     Active Substance: RISPERIDONE
     Dosage: 2 ML, QD
     Route: 048
     Dates: start: 20120206, end: 20120306
  2. RISPERIDONE. [Suspect]
     Active Substance: RISPERIDONE
     Dosage: 1 ML, QD
     Route: 048
     Dates: start: 20120307
  3. ROHYPNOL [Concomitant]
     Active Substance: FLUNITRAZEPAM
     Indication: PRODUCT USED FOR UNKNOWN INDICATION
     Dosage: 2 MG, QD
     Route: 048
     Dates: end: 201408
  4. FLUNITRAZEPAM [Concomitant]
     Active Substance: FLUNITRAZEPAM
     Indication: PRODUCT USED FOR UNKNOWN INDICATION
     Dosage: 2 MG, QD
     Route: 048
     Dates: end: 201408
  5. RISPERDAL [Suspect]
     Active Substance: RISPERIDONE
     Dosage: 3 ML, QD
     Route: 048
     Dates: end: 20120205
  6. RISPERIDONE. [Suspect]
     Active Substance: RISPERIDONE
     Indication: PRODUCT USED FOR UNKNOWN INDICATION
     Dosage: UNK
     Route: 048
  7. ABILIFY [Suspect]
     Active Substance: ARIPIPRAZOLE
     Indication: SCHIZOPHRENIA
     Dosage: 24 MG, QD
     Route: 048
  8. RISPERDAL [Suspect]
     Active Substance: RISPERIDONE
     Dosage: 2 ML, QD
     Route: 048
     Dates: start: 20120206, end: 20120306
  9. RISPERIDONE. [Suspect]
     Active Substance: RISPERIDONE
     Dosage: 3 ML, QD
     Route: 048
     Dates: start: 20120205, end: 20120205
  10. RISPERDAL [Suspect]
     Active Substance: RISPERIDONE
     Indication: PRODUCT USED FOR UNKNOWN INDICATION
     Dosage: 1 ML, QD
     Route: 048
     Dates: start: 20120307
  11. LUNESTA [Concomitant]
     Active Substance: ESZOPICLONE
     Indication: PRODUCT USED FOR UNKNOWN INDICATION
     Dosage: 3 MG, QD
     Route: 048
     Dates: start: 201409
  12. ESZOPICLONE. [Concomitant]
     Active Substance: ESZOPICLONE
     Indication: PRODUCT USED FOR UNKNOWN INDICATION
     Dosage: 3 MG, QD
     Route: 048
     Dates: start: 201409

REACTIONS (1)
  - Diabetes mellitus [Recovered/Resolved with Sequelae]

NARRATIVE: CASE EVENT DATE: 20161203
